FAERS Safety Report 4886268-6 (Version None)
Quarter: 2006Q1

REPORT INFORMATION
  Report Type: 
  Country: None (occurrence: None)
  Receive Date: 20060118
  Receipt Date: 20060103
  Transmission Date: 20060701
  Serious: Yes (Hospitalization)
  Sender: FDA-Public Use
  Company Number: US200601000247

PATIENT
  Age: 56 Year
  Sex: Female

DRUGS (2)
  1. FORTEO [Suspect]
     Dosage: 20 UG/DAY, SUBCUTANEOUS
     Route: 058
     Dates: start: 20041201
  2. FORTEO [Concomitant]

REACTIONS (3)
  - DEHYDRATION [None]
  - NEPHROLITHIASIS [None]
  - PAIN [None]
